FAERS Safety Report 5497932-2 (Version None)
Quarter: 2007Q4

REPORT INFORMATION
  Report Type: 
  Country: None (occurrence: None)
  Receive Date: 20071025
  Receipt Date: 20071016
  Transmission Date: 20080405
  Serious: Yes (Other)
  Sender: FDA-Public Use
  Company Number: US-GENENTECH-248865

PATIENT
  Sex: Female
  Weight: 45 kg

DRUGS (1)
  1. HERCEPTIN [Suspect]
     Indication: BREAST CANCER METASTATIC
     Dosage: 90 MG, 1/WEEK
     Route: 042
     Dates: start: 20060221

REACTIONS (1)
  - DEAFNESS UNILATERAL [None]
